FAERS Safety Report 4889594-X (Version None)
Quarter: 2006Q1

REPORT INFORMATION
  Report Type: 
  Country: None (occurrence: None)
  Receive Date: 20060120
  Receipt Date: 20060110
  Transmission Date: 20060701
  Serious: Yes (Hospitalization, Other)
  Sender: FDA-Public Use
  Company Number: 2005166425

PATIENT
  Age: 48 Year
  Sex: Female

DRUGS (7)
  1. ATORVASTATIN CALCIUM [Suspect]
     Indication: DYSLIPIDAEMIA
     Dosage: 20 MG (20 MG, 1 IN 1 D), ORAL
     Route: 048
     Dates: start: 19980201
  2. ALL OTHER THERAPEUTIC PRODUCTS [Suspect]
     Indication: ILL-DEFINED DISORDER
  3. WARFARIN SODIUM [Concomitant]
  4. ASPIRIN [Concomitant]
  5. LOSARTAN POTASSIUM [Concomitant]
  6. CAPTOPRIL [Concomitant]
  7. METHYLDOPA [Concomitant]

REACTIONS (4)
  - ASTHENIA [None]
  - HYPERTENSION [None]
  - RENAL FAILURE [None]
  - THROMBOSIS [None]
